FAERS Safety Report 10330083 (Version 2)
Quarter: 2014Q3

REPORT INFORMATION
  Report Type: Spontaneous
  Country: GB (occurrence: GB)
  Receive Date: 20140721
  Receipt Date: 20140721
  Transmission Date: 20150326
  Serious: Yes (Disabling, Other)
  Sender: FDA-Public Use
  Company Number: ALCN2008GB001712

PATIENT
  Age: 54 Year

DRUGS (2)
  1. TIMOLOL [Suspect]
     Active Substance: TIMOLOL
     Dosage: 1 DF, UNK
     Route: 047
  2. DUOTRAV [Suspect]
     Active Substance: TIMOLOL\TRAVOPROST
     Indication: GLAUCOMA
     Dosage: 1 DF, UNK
     Route: 047
     Dates: start: 20080918, end: 20080923

REACTIONS (4)
  - Feeling abnormal [Recovered/Resolved]
  - Malaise [Recovered/Resolved]
  - Dizziness [Recovered/Resolved]
  - Activities of daily living impaired [Recovered/Resolved]

NARRATIVE: CASE EVENT DATE: 20080918
